FAERS Safety Report 9405296 (Version 2)
Quarter: 2013Q3

REPORT INFORMATION
  Report Type: Spontaneous
  Country: US (occurrence: US)
  Receive Date: 20130717
  Receipt Date: 20130805
  Transmission Date: 20140515
  Serious: Yes (Other)
  Sender: FDA-Public Use
  Company Number: US-PERRIGO-13US007174

PATIENT
  Age: 5 Year
  Sex: Female
  Weight: 23.13 kg

DRUGS (2)
  1. IBUPROFEN 20 MG/ML CHILD GRAPE 660 [Suspect]
     Indication: NASOPHARYNGITIS
     Dosage: 200 MG, SINGLE
     Route: 048
     Dates: start: 20130629, end: 20130629
  2. MULTIVITAMIN [Concomitant]
     Indication: SUPPLEMENTATION THERAPY
     Dosage: UNK, UNK
     Route: 048

REACTIONS (7)
  - Hypersensitivity [Recovered/Resolved]
  - Lip swelling [Recovered/Resolved]
  - Eye swelling [Recovered/Resolved]
  - Swollen tongue [Recovered/Resolved]
  - Cough [Recovered/Resolved]
  - Wheezing [Recovered/Resolved]
  - Swelling face [Recovered/Resolved]
